FAERS Safety Report 5046620-5 (Version None)
Quarter: 2006Q2

REPORT INFORMATION
  Report Type: 
  Country: None (occurrence: None)
  Receive Date: 20060630
  Receipt Date: 20060619
  Transmission Date: 20061013
  Serious: Yes (Hospitalization)
  Sender: FDA-Public Use
  Company Number: 200612551GDS

PATIENT
  Age: 78 Year
  Sex: Male
  Weight: 75 kg

DRUGS (7)
  1. SORAFENIB [Suspect]
     Indication: RENAL CELL CARCINOMA STAGE UNSPECIFIED
     Dosage: SEE IMAGE
     Route: 048
     Dates: start: 20060531, end: 20060615
  2. SORAFENIB [Suspect]
     Indication: RENAL CELL CARCINOMA STAGE UNSPECIFIED
     Dosage: SEE IMAGE
     Route: 048
     Dates: start: 20060615, end: 20060617
  3. VERAPAMIL [Concomitant]
  4. METOPROLOL TARTRATE [Concomitant]
  5. FOSINOPRIL SODIUM [Concomitant]
  6. ACENOCOUMAROL [Concomitant]
  7. BLOOD TRANSFUSION [Concomitant]

REACTIONS (1)
  - CONFUSIONAL STATE [None]
